FAERS Safety Report 8380378-7 (Version None)
Quarter: 2012Q2

REPORT INFORMATION
  Report Type: 
  Country: None (occurrence: None)
  Receive Date: 20120515
  Receipt Date: 20120501
  Transmission Date: 20120825
  Serious: Yes (Other)
  Sender: FDA-Public Use
  Company Number: 12-007

PATIENT
  Age: 49 Year
  Sex: Female

DRUGS (1)
  1. ALLERGEN EXTRACT [Suspect]
     Indication: IMMUNE ENHANCEMENT THERAPY

REACTIONS (1)
  - ANAPHYLACTIC REACTION [None]
